FAERS Safety Report 24951308 (Version 2)
Quarter: 2025Q4

REPORT INFORMATION
  Report Type: Spontaneous
  Country: US (occurrence: US)
  Receive Date: 20250210
  Receipt Date: 20251128
  Transmission Date: 20260117
  Serious: Yes (Hospitalization, Other)
  Sender: GC Biopharma
  Company Number: US-GC BIOPHARMA-US-2025-GCBP-00004

PATIENT
  Age: 78 Year
  Sex: Male

DRUGS (2)
  1. ALYGLO [Suspect]
     Active Substance: HUMAN IMMUNOGLOBULIN G-STWK
     Indication: Primary immunodeficiency syndrome
     Dosage: 35 GRAM ( (20 GM, 10 GM AND 5 GM), ONE VIAL
     Route: 042
     Dates: start: 20250109, end: 20250109
  2. ALYGLO [Suspect]
     Active Substance: HUMAN IMMUNOGLOBULIN G-STWK
     Dosage: UNK, 2ND DOSE
     Route: 042
     Dates: start: 202412

REACTIONS (5)
  - Pneumonia bacterial [Unknown]
  - Vision blurred [Unknown]
  - Tremor [Unknown]
  - Confusional state [Unknown]
  - Fatigue [Unknown]

NARRATIVE: CASE EVENT DATE: 20250109
